FAERS Safety Report 18035267 (Version 1)
Quarter: 2020Q3

REPORT INFORMATION
  Report Type: Spontaneous
  Country: US (occurrence: US)
  Receive Date: 20200717
  Receipt Date: 20200717
  Transmission Date: 20201103
  Serious: Yes (Hospitalization, Other)
  Sender: FDA-Public Use
  Company Number: US-TEVA-2020-US-1800980

PATIENT
  Age: 24 Year
  Sex: Female
  Weight: 52.16 kg

DRUGS (3)
  1. AJOVY [Suspect]
     Active Substance: FREMANEZUMAB-VFRM
     Indication: MIGRAINE
     Dosage: AJOVY,225 MG / 1.5 ML
     Route: 065
     Dates: start: 20200618, end: 20200618
  2. IBUPROFEN. [Concomitant]
     Active Substance: IBUPROFEN
     Indication: MIGRAINE
  3. PROPRANOLOL [Concomitant]
     Active Substance: PROPRANOLOL HYDROCHLORIDE
     Indication: MIGRAINE

REACTIONS (14)
  - Headache [Unknown]
  - Abdominal distension [Unknown]
  - Drug ineffective [Unknown]
  - Loss of personal independence in daily activities [Unknown]
  - Head discomfort [Unknown]
  - Abnormal weight gain [Unknown]
  - Dizziness [Unknown]
  - Therapy non-responder [Unknown]
  - Vasoconstriction [Unknown]
  - Cerebrovascular accident [Unknown]
  - Visual impairment [Not Recovered/Not Resolved]
  - Product lot number issue [Unknown]
  - Feeling abnormal [Unknown]
  - Vision blurred [Unknown]

NARRATIVE: CASE EVENT DATE: 2020
